FAERS Safety Report 4948258-4 (Version None)
Quarter: 2006Q1

REPORT INFORMATION
  Report Type: 
  Country: None (occurrence: None)
  Receive Date: 20060127
  Receipt Date: 20050218
  Transmission Date: 20060701
  Serious: Yes (Death)
  Sender: FDA-Public Use
  Company Number: 05-02-0250

PATIENT
  Age: 86 Year
  Sex: Female

DRUGS (1)
  1. CLOZAPINE [Suspect]
     Indication: PARKINSONISM
     Dosage: 25-37.5MG QD, ORAL
     Route: 048
     Dates: start: 20020701, end: 20050101

REACTIONS (3)
  - MUSCLE ATROPHY [None]
  - NERVOUS SYSTEM DISORDER [None]
  - UROSEPSIS [None]
